FAERS Safety Report 7386057-7 (Version None)
Quarter: 2011Q1

REPORT INFORMATION
  Report Type: 
  Country: None (occurrence: None)
  Receive Date: 20110331
  Receipt Date: 20110323
  Transmission Date: 20110831
  Serious: Yes (Other)
  Sender: FDA-Public Use
  Company Number: IE-AMGEN-IRLSP2011015685

PATIENT
  Sex: Male

DRUGS (7)
  1. NEULASTA [Suspect]
     Indication: CHEMOTHERAPY
     Dosage: 6 MG, Q2WK
     Route: 058
     Dates: start: 20101117
  2. EMEND                              /01627301/ [Concomitant]
  3. ANTINEOPLASTIC AGENTS [Concomitant]
  4. DEXAMETHASONE [Concomitant]
  5. CYCLIZINE [Concomitant]
  6. VENTOLIN [Concomitant]
  7. SPIRIVA [Concomitant]

REACTIONS (1)
  - HAEMOGLOBIN DECREASED [None]
